FAERS Safety Report 9410080 (Version 1)
Quarter: 2013Q3

REPORT INFORMATION
  Report Type: Spontaneous
  Country: JP (occurrence: JP)
  Receive Date: 20130719
  Receipt Date: 20130719
  Transmission Date: 20140515
  Serious: Yes (Hospitalization, Other)
  Sender: FDA-Public Use
  Company Number: PHHY2013JP074963

PATIENT
  Age: 7 Year
  Sex: Male

DRUGS (4)
  1. CICLOSPORIN [Suspect]
     Indication: JUVENILE IDIOPATHIC ARTHRITIS
     Dosage: 1.5 MG/KG, PER DAY
  2. CICLOSPORIN [Suspect]
     Indication: HISTIOCYTOSIS HAEMATOPHAGIC
  3. METHYLPREDNISOLONE [Suspect]
     Indication: JUVENILE IDIOPATHIC ARTHRITIS
     Dosage: 30 MG/KG, PER DAY, 3 CONSECUTIVE DAYS IN A WEEK
     Route: 042
  4. DEXAMETHASONE [Suspect]

REACTIONS (5)
  - Histiocytosis haematophagic [Unknown]
  - Juvenile idiopathic arthritis [Recovered/Resolved]
  - Serum ferritin increased [Recovered/Resolved]
  - Pyrexia [Recovered/Resolved]
  - Drug resistance [Unknown]
